FAERS Safety Report 16431398 (Version 1)
Quarter: 2019Q2

REPORT INFORMATION
  Report Type: Spontaneous
  Country: US (occurrence: US)
  Receive Date: 20190507
  Receipt Date: 20190507
  Transmission Date: 20190711
  Serious: No
  Sender: FDA-Public Use
  Company Number: None

PATIENT
  Age: 52 Year
  Sex: Female

DRUGS (2)
  1. FORTEO [Suspect]
     Active Substance: TERIPARATIDE
     Dates: start: 201712
  2. PENNEEDLE UF NANO 32GX4MM [Suspect]
     Active Substance: DEVICE
     Dates: start: 201803, end: 201903

REACTIONS (2)
  - Needle issue [None]
  - Incorrect dose administered by device [None]

NARRATIVE: CASE EVENT DATE: 20180309
